FAERS Safety Report 18819483 (Version 1)
Quarter: 2021Q1

REPORT INFORMATION
  Report Type: Spontaneous
  Country: US (occurrence: US)
  Receive Date: 20210201
  Receipt Date: 20210201
  Transmission Date: 20210419
  Serious: Yes (Other)
  Sender: FDA-Public Use
  Company Number: NVSC2021US021277

PATIENT

DRUGS (1)
  1. BEOVU [Suspect]
     Active Substance: BROLUCIZUMAB-DBLL
     Indication: PRODUCT USED FOR UNKNOWN INDICATION
     Dosage: UNK
     Route: 065

REACTIONS (11)
  - Retinal vasculitis [Unknown]
  - Anxiety [Unknown]
  - Deformity [Unknown]
  - Retinal vascular occlusion [Unknown]
  - Injury [Unknown]
  - Eye injury [Not Recovered/Not Resolved]
  - Anhedonia [Unknown]
  - Retinal artery occlusion [Unknown]
  - Pain [Unknown]
  - Emotional distress [Unknown]
  - Eye inflammation [Unknown]
